FAERS Safety Report 5243858-9 (Version None)
Quarter: 2007Q1

REPORT INFORMATION
  Report Type: 
  Country: None (occurrence: None)
  Receive Date: 20070215
  Receipt Date: 20070129
  Transmission Date: 20070707
  Serious: Yes (Hospitalization)
  Sender: FDA-Public Use
  Company Number: FSC_0060_2007

PATIENT
  Age: 72 Year
  Sex: Male

DRUGS (3)
  1. ISOPTIN [Suspect]
     Indication: HYPERTENSION
     Dosage: 240 MG QDAY;PO
     Route: 048
     Dates: start: 19960715
  2. ALDACTAZINE [Suspect]
     Indication: HYPERTENSION
     Dosage: 0.5 DF QDAY; PO
     Route: 048
     Dates: start: 19960715, end: 20061115
  3. BETAMETHASONE + ACID SALICYLIC [Suspect]
     Indication: PSORIASIS
     Dosage: DF; TP
     Route: 061
     Dates: start: 19960715, end: 20061113

REACTIONS (7)
  - CONDITION AGGRAVATED [None]
  - ECZEMA [None]
  - IMPETIGO [None]
  - PHOTOSENSITIVITY REACTION [None]
  - PSORIASIS [None]
  - RASH ERYTHEMATOUS [None]
  - RASH PAPULOSQUAMOUS [None]
